FAERS Safety Report 19761819 (Version 7)
Quarter: 2022Q3

REPORT INFORMATION
  Report Type: Report from Study
  Country: DE (occurrence: DE)
  Receive Date: 20210830
  Receipt Date: 20220826
  Transmission Date: 20221027
  Serious: Yes (Hospitalization, Other)
  Sender: FDA-Public Use
  Company Number: NVSC2021DE191505

PATIENT
  Age: 66 Year
  Sex: Male
  Weight: 76 kg

DRUGS (7)
  1. ELTROMBOPAG [Suspect]
     Active Substance: ELTROMBOPAG
     Indication: Immune thrombocytopenia
     Dosage: 50 MG, BID
     Route: 048
     Dates: start: 20210730, end: 20210821
  2. ELTROMBOPAG [Suspect]
     Active Substance: ELTROMBOPAG
     Dosage: 50 MG, BID
     Route: 048
     Dates: start: 20210904, end: 20211021
  3. ELTROMBOPAG [Suspect]
     Active Substance: ELTROMBOPAG
     Dosage: 25 MG, BID
     Route: 048
     Dates: start: 20211022
  4. CANDESARTAN [Concomitant]
     Active Substance: CANDESARTAN
     Indication: Hypertension
     Dosage: 8 MG, BID
     Route: 048
     Dates: start: 20140101
  5. AMLODIPINE BESYLATE [Concomitant]
     Active Substance: AMLODIPINE BESYLATE
     Indication: Hypertension
     Dosage: 5 MG, BID QD
     Route: 048
     Dates: start: 20140101
  6. HYGROTON [Concomitant]
     Active Substance: CHLORTHALIDONE
     Indication: Hypertension
     Dosage: 25 MG, BID QD
     Route: 048
     Dates: start: 20140101
  7. VENLAFAXINE HYDROCHLORIDE [Concomitant]
     Active Substance: VENLAFAXINE HYDROCHLORIDE
     Indication: Depression
     Dosage: 189,5 MG, BID
     Route: 048
     Dates: start: 20060101

REACTIONS (2)
  - Pancreatitis [Recovered/Resolved]
  - Prostate cancer [Recovered/Resolved]

NARRATIVE: CASE EVENT DATE: 20210821
